FAERS Safety Report 23619475 (Version 2)
Quarter: 2024Q1

REPORT INFORMATION
  Report Type: Spontaneous
  Country: CA (occurrence: CA)
  Receive Date: 20240311
  Receipt Date: 20240315
  Transmission Date: 20240410
  Serious: Yes (Death, Life-Threatening, Hospitalization, Disabling, Other)
  Sender: FDA-Public Use
  Company Number: CA-009507513-2403CAN002865

PATIENT
  Age: 44 Year
  Sex: Female

DRUGS (438)
  1. EMEND [Suspect]
     Active Substance: APREPITANT
     Indication: Product used for unknown indication
     Dosage: 5.0 MILLIGRAM
     Route: 065
  2. EMEND [Suspect]
     Active Substance: APREPITANT
     Dosage: 3 MILLIGRAM
     Route: 065
  3. EMEND [Suspect]
     Active Substance: APREPITANT
     Dosage: 5.0 MILLIGRAM
     Route: 048
  4. SIMPONI [Suspect]
     Active Substance: GOLIMUMAB
     Indication: Rheumatoid arthritis
     Dosage: UNK
     Route: 058
  5. SIMPONI [Suspect]
     Active Substance: GOLIMUMAB
     Indication: Product used for unknown indication
     Dosage: UNK
     Route: 065
  6. SIMPONI [Suspect]
     Active Substance: GOLIMUMAB
     Dosage: UNK
     Route: 058
  7. SIMPONI [Suspect]
     Active Substance: GOLIMUMAB
     Dosage: UNK
     Route: 065
  8. SIMPONI [Suspect]
     Active Substance: GOLIMUMAB
     Dosage: 50.0 MILLIGRAM
     Route: 058
  9. SIMPONI [Suspect]
     Active Substance: GOLIMUMAB
     Dosage: UNK
     Route: 052
  10. SIMPONI [Suspect]
     Active Substance: GOLIMUMAB
     Dosage: UNK
     Route: 058
  11. SIMPONI [Suspect]
     Active Substance: GOLIMUMAB
     Dosage: UNK
     Route: 065
  12. SIMPONI [Suspect]
     Active Substance: GOLIMUMAB
     Dosage: UNK
     Route: 042
  13. SIMPONI [Suspect]
     Active Substance: GOLIMUMAB
     Dosage: UNK
     Route: 058
  14. REMICADE [Suspect]
     Active Substance: INFLIXIMAB
     Indication: Rheumatoid arthritis
     Dosage: UNK
     Route: 042
  15. REMICADE [Suspect]
     Active Substance: INFLIXIMAB
     Indication: Product used for unknown indication
     Dosage: 400 MILLIGRAM
     Route: 065
  16. REMICADE [Suspect]
     Active Substance: INFLIXIMAB
     Dosage: UNK
     Route: 042
  17. REMICADE [Suspect]
     Active Substance: INFLIXIMAB
     Dosage: 500.0 MILLIGRAM
     Route: 042
  18. REMICADE [Suspect]
     Active Substance: INFLIXIMAB
     Dosage: UNK
     Route: 065
  19. REMICADE [Suspect]
     Active Substance: INFLIXIMAB
     Dosage: UNK
     Route: 042
  20. REMICADE [Suspect]
     Active Substance: INFLIXIMAB
     Dosage: 500.0 MILLIGRAM
     Route: 042
  21. REMICADE [Suspect]
     Active Substance: INFLIXIMAB
     Dosage: UNK
     Route: 042
  22. ALENDRONATE SODIUM [Suspect]
     Active Substance: ALENDRONATE SODIUM
     Dosage: UNK
  23. ACETAMINOPHEN [Suspect]
     Active Substance: ACETAMINOPHEN
     Indication: Rheumatoid arthritis
     Dosage: 10 MILLIGRAM
     Route: 065
  24. ACETAMINOPHEN [Suspect]
     Active Substance: ACETAMINOPHEN
     Indication: Product used for unknown indication
     Dosage: UNK
     Route: 065
  25. ACTEMRA [Suspect]
     Active Substance: TOCILIZUMAB
     Indication: Rheumatoid arthritis
     Dosage: UNK
     Route: 065
  26. ACTEMRA [Suspect]
     Active Substance: TOCILIZUMAB
     Indication: Product used for unknown indication
     Dosage: UNK
     Route: 042
  27. ACTEMRA [Suspect]
     Active Substance: TOCILIZUMAB
     Dosage: 3011.2 MILLIGRAM
     Route: 042
  28. ACTEMRA [Suspect]
     Active Substance: TOCILIZUMAB
     Dosage: 3011.2 MILLIGRAM
     Route: 042
  29. ACTEMRA [Suspect]
     Active Substance: TOCILIZUMAB
     Dosage: UNK
     Route: 065
  30. ACTEMRA [Suspect]
     Active Substance: TOCILIZUMAB
     Dosage: UNK
     Route: 065
  31. ACTEMRA [Suspect]
     Active Substance: TOCILIZUMAB
     Dosage: UNK
     Route: 048
  32. ACTEMRA [Suspect]
     Active Substance: TOCILIZUMAB
     Dosage: 2912.0 MILLIGRAM, 1 EVERY 1 WEEKS
     Route: 042
  33. ACTEMRA [Suspect]
     Active Substance: TOCILIZUMAB
     Dosage: 728.0 MILLIGRAM
     Route: 042
  34. ACTEMRA [Suspect]
     Active Substance: TOCILIZUMAB
     Dosage: UNK
     Route: 058
  35. ACTEMRA [Suspect]
     Active Substance: TOCILIZUMAB
     Dosage: 20.0 MILLIGRAM
     Route: 048
  36. ACTEMRA [Suspect]
     Active Substance: TOCILIZUMAB
     Dosage: UNK
     Route: 061
  37. ACTEMRA [Suspect]
     Active Substance: TOCILIZUMAB
     Dosage: 1.0 DOSAGE FORM, 1 EVERY 1 WEEKS
     Route: 042
  38. ACTEMRA [Suspect]
     Active Substance: TOCILIZUMAB
     Dosage: 1.0 DOSAGE FORM, 1 EVERY 1 WEEKS
     Route: 058
  39. ACTEMRA [Suspect]
     Active Substance: TOCILIZUMAB
     Dosage: 752.8 MILLIGRAM
     Route: 042
  40. ACTEMRA [Suspect]
     Active Substance: TOCILIZUMAB
     Dosage: 2912.0 MILLIGRAM
     Route: 042
  41. ACTEMRA [Suspect]
     Active Substance: TOCILIZUMAB
     Dosage: 752 MILLIGRAM
     Route: 065
  42. ACTEMRA [Suspect]
     Active Substance: TOCILIZUMAB
     Dosage: FORMULATION: UNKNOWN
     Route: 042
  43. ACTEMRA [Suspect]
     Active Substance: TOCILIZUMAB
     Dosage: FORMULATION: UNKNOWN
     Route: 042
  44. ADALIMUMAB [Suspect]
     Active Substance: ADALIMUMAB\ISOPROPYL ALCOHOL
     Indication: Rheumatoid arthritis
     Dosage: UNK
     Route: 058
  45. ADALIMUMAB [Suspect]
     Active Substance: ADALIMUMAB\ISOPROPYL ALCOHOL
     Indication: Product used for unknown indication
     Dosage: UNK
     Route: 058
  46. ADALIMUMAB [Suspect]
     Active Substance: ADALIMUMAB\ISOPROPYL ALCOHOL
     Indication: Psoriatic arthropathy
     Dosage: 40.0 MILLIGRAM
     Route: 058
  47. ADALIMUMAB [Suspect]
     Active Substance: ADALIMUMAB\ISOPROPYL ALCOHOL
     Dosage: 40.0 MILLIGRAM
     Route: 048
  48. ALENDRONIC ACID [Suspect]
     Active Substance: ALENDRONIC ACID
     Indication: Rheumatoid arthritis
     Dosage: UNK
     Route: 048
  49. ALENDRONIC ACID [Suspect]
     Active Substance: ALENDRONIC ACID
     Indication: Product used for unknown indication
     Dosage: 1 DOSAGE FORM
     Route: 065
  50. ALENDRONIC ACID [Suspect]
     Active Substance: ALENDRONIC ACID
     Dosage: FORMULATION: UNKNOWN
     Route: 065
  51. ALENDRONIC ACID [Suspect]
     Active Substance: ALENDRONIC ACID
     Dosage: FORMULATION: UNKNOWN
     Route: 048
  52. ALENDRONIC ACID [Suspect]
     Active Substance: ALENDRONIC ACID
     Dosage: FORMULATION: UNKNOWN
     Route: 065
  53. DICLOFENAC POTASSIUM [Suspect]
     Active Substance: DICLOFENAC POTASSIUM
     Indication: Product used for unknown indication
     Dosage: 50 MILLIGRAM
     Route: 065
  54. DICLOFENAC POTASSIUM [Suspect]
     Active Substance: DICLOFENAC POTASSIUM
     Dosage: FORMULATION: ENTERIC COATED TABLET.
     Route: 065
  55. PREDNISONE [Suspect]
     Active Substance: PREDNISONE
     Indication: Rheumatoid arthritis
     Dosage: 1.0 MILLIGRAM
     Route: 065
  56. PREDNISONE [Suspect]
     Active Substance: PREDNISONE
     Indication: Product used for unknown indication
     Dosage: UNK
     Route: 048
  57. PREDNISONE [Suspect]
     Active Substance: PREDNISONE
     Dosage: 40.0 MILLIGRAM
     Route: 065
  58. PREDNISONE [Suspect]
     Active Substance: PREDNISONE
     Dosage: 5.0 MILLIGRAM
     Route: 048
  59. PREDNISONE [Suspect]
     Active Substance: PREDNISONE
     Dosage: 5.0 MILLIGRAM
     Route: 065
  60. APREMILAST [Suspect]
     Active Substance: APREMILAST
     Indication: Product used for unknown indication
     Dosage: 5.0 MILLIGRAM
     Route: 065
  61. APREMILAST [Suspect]
     Active Substance: APREMILAST
     Dosage: 3.0 MILLIGRAM
     Route: 065
  62. APREMILAST [Suspect]
     Active Substance: APREMILAST
     Dosage: 5.0 MILLIGRAM
     Route: 048
  63. APREMILAST [Suspect]
     Active Substance: APREMILAST
     Dosage: 5.0 MILLIGRAM
     Route: 065
  64. APREMILAST [Suspect]
     Active Substance: APREMILAST
     Dosage: 3.0 MILLIGRAM
     Route: 065
  65. APREMILAST [Suspect]
     Active Substance: APREMILAST
     Dosage: 5.0 MILLIGRAM
     Route: 048
  66. ARAVA [Suspect]
     Active Substance: LEFLUNOMIDE
     Indication: Rheumatoid arthritis
     Dosage: 20.0 MILLIGRAM, 1 EVERY 1 DAYS
     Route: 048
  67. ARAVA [Suspect]
     Active Substance: LEFLUNOMIDE
     Indication: Product used for unknown indication
     Dosage: 20 MILLIGRAM
     Route: 048
  68. ARAVA [Suspect]
     Active Substance: LEFLUNOMIDE
     Dosage: UNK
     Route: 065
  69. ARAVA [Suspect]
     Active Substance: LEFLUNOMIDE
     Dosage: FORMULATION: TABLET
     Route: 048
  70. BORAGE OIL [Suspect]
     Active Substance: BORAGE OIL
     Indication: Product used for unknown indication
     Dosage: UNK
     Route: 065
  71. CALCIUM CARBONATE [Suspect]
     Active Substance: CALCIUM CARBONATE
     Indication: Product used for unknown indication
     Dosage: UNK
     Route: 065
  72. CALCIUM CARBONATE [Suspect]
     Active Substance: CALCIUM CARBONATE
     Dosage: UNK
     Route: 065
  73. CELEBREX [Suspect]
     Active Substance: CELECOXIB
     Indication: Product used for unknown indication
     Dosage: 2.0 DOSAGE FORM, 1 EVERY 1 DAYS
     Route: 048
  74. CELEBREX [Suspect]
     Active Substance: CELECOXIB
     Indication: Arthritis
     Dosage: 1.0 DOSAGE FORM, 1 EVERY 1 DAYS
     Route: 048
  75. CELEBREX [Suspect]
     Active Substance: CELECOXIB
     Dosage: 2 DOSAGE FORM. FORMULATION: CAPSULE HARD
     Route: 048
  76. CELECOXIB [Suspect]
     Active Substance: CELECOXIB
     Indication: Product used for unknown indication
     Dosage: 1.0 DOSAGE FORM, 1 EVERY 1 DAYS
     Route: 065
  77. CERTOLIZUMAB PEGOL [Suspect]
     Active Substance: CERTOLIZUMAB PEGOL
     Indication: Product used for unknown indication
     Dosage: UNK
     Route: 065
  78. CETIRIZINE HYDROCHLORIDE [Suspect]
     Active Substance: CETIRIZINE HYDROCHLORIDE
     Indication: Rheumatoid arthritis
     Dosage: UNK, 1 EVERY 1 DAYS
     Route: 065
  79. CETIRIZINE HYDROCHLORIDE [Suspect]
     Active Substance: CETIRIZINE HYDROCHLORIDE
     Indication: Product used for unknown indication
     Dosage: UNK
     Route: 065
  80. CETIRIZINE HYDROCHLORIDE [Suspect]
     Active Substance: CETIRIZINE HYDROCHLORIDE
     Dosage: 10.0 MILLIGRAM
     Route: 065
  81. CETIRIZINE HYDROCHLORIDE [Suspect]
     Active Substance: CETIRIZINE HYDROCHLORIDE
     Dosage: 10.0 MILLIGRAM
     Route: 048
  82. CETIRIZINE HYDROCHLORIDE [Suspect]
     Active Substance: CETIRIZINE HYDROCHLORIDE
     Dosage: 10.0 MILLIGRAM,1 EVERY 1 DAYS
     Route: 065
  83. CETIRIZINE HYDROCHLORIDE [Suspect]
     Active Substance: CETIRIZINE HYDROCHLORIDE
     Dosage: UNK
     Route: 065
  84. CETIRIZINE HYDROCHLORIDE [Suspect]
     Active Substance: CETIRIZINE HYDROCHLORIDE
     Dosage: 10.0 MILLIGRAM,1 EVERY 1 DAYS
     Route: 048
  85. CETIRIZINE HYDROCHLORIDE [Suspect]
     Active Substance: CETIRIZINE HYDROCHLORIDE
     Dosage: UNK
     Route: 065
  86. CETIRIZINE HYDROCHLORIDE [Suspect]
     Active Substance: CETIRIZINE HYDROCHLORIDE
     Dosage: 10 MILLIGRAM
     Route: 065
  87. CETIRIZINE HYDROCHLORIDE [Suspect]
     Active Substance: CETIRIZINE HYDROCHLORIDE
     Dosage: 10 MILLIGRAM
     Route: 065
  88. CETIRIZINE HYDROCHLORIDE [Suspect]
     Active Substance: CETIRIZINE HYDROCHLORIDE
     Dosage: 10 MILLIGRAM, 1 EVERY 1 DAYS
     Route: 065
  89. CETIRIZINE HYDROCHLORIDE [Suspect]
     Active Substance: CETIRIZINE HYDROCHLORIDE
     Dosage: 10 MILLIGRAM
     Route: 065
  90. CETIRIZINE HYDROCHLORIDE [Suspect]
     Active Substance: CETIRIZINE HYDROCHLORIDE
     Dosage: UNK
     Route: 065
  91. CETIRIZINE HYDROCHLORIDE [Suspect]
     Active Substance: CETIRIZINE HYDROCHLORIDE
     Dosage: UNK
     Route: 065
  92. CETIRIZINE HYDROCHLORIDE [Suspect]
     Active Substance: CETIRIZINE HYDROCHLORIDE
     Dosage: 10.0 MILLIGRAM
     Route: 048
  93. CETIRIZINE HYDROCHLORIDE [Suspect]
     Active Substance: CETIRIZINE HYDROCHLORIDE
     Dosage: 25.0 GRAM
     Route: 065
  94. CETIRIZINE HYDROCHLORIDE [Suspect]
     Active Substance: CETIRIZINE HYDROCHLORIDE
     Dosage: 25.0 MILLIGRAM
     Route: 048
  95. CETIRIZINE HYDROCHLORIDE [Suspect]
     Active Substance: CETIRIZINE HYDROCHLORIDE
     Dosage: 25.0 MILLIGRAM
     Route: 065
  96. CETIRIZINE HYDROCHLORIDE [Suspect]
     Active Substance: CETIRIZINE HYDROCHLORIDE
     Dosage: 10.0 MILLIGRAM, 1 EVERY 1 DAYS
     Route: 048
  97. CETIRIZINE HYDROCHLORIDE [Suspect]
     Active Substance: CETIRIZINE HYDROCHLORIDE
     Dosage: 25.0 MILLIGRAM
     Route: 065
  98. CETIRIZINE HYDROCHLORIDE [Suspect]
     Active Substance: CETIRIZINE HYDROCHLORIDE
     Dosage: FORMULATION: UNKNOWN
     Route: 065
  99. CETIRIZINE HYDROCHLORIDE [Suspect]
     Active Substance: CETIRIZINE HYDROCHLORIDE
     Dosage: 25 MILLIGRAM,FORMULATION: UNKNOWN
     Route: 048
  100. CETIRIZINE HYDROCHLORIDE [Suspect]
     Active Substance: CETIRIZINE HYDROCHLORIDE
     Dosage: 10 MILLIGRAM,FORMULATION: UNKNOWN
     Route: 065
  101. CETIRIZINE HYDROCHLORIDE [Suspect]
     Active Substance: CETIRIZINE HYDROCHLORIDE
     Dosage: 10 MILLIGRAM,FORMULATION: UNKNOWN
     Route: 048
  102. CHLORAPREP [Suspect]
     Active Substance: CHLORHEXIDINE GLUCONATE\ISOPROPYL ALCOHOL
     Indication: Product used for unknown indication
     Dosage: UNK
     Route: 061
  103. CHLORAPREP [Suspect]
     Active Substance: CHLORHEXIDINE GLUCONATE\ISOPROPYL ALCOHOL
     Dosage: FORMULATION: SOLUTION
     Route: 065
  104. CHLORHEXIDINE [Suspect]
     Active Substance: CHLORHEXIDINE\CHLORHEXIDINE GLUCONATE
     Indication: Product used for unknown indication
     Dosage: UNK
     Route: 065
  105. CHLORHEXIDINE [Suspect]
     Active Substance: CHLORHEXIDINE\CHLORHEXIDINE GLUCONATE
     Dosage: UNK
     Route: 002
  106. CHLORHEXIDINE [Suspect]
     Active Substance: CHLORHEXIDINE\CHLORHEXIDINE GLUCONATE
     Dosage: UNK
     Route: 061
  107. CHLORHEXIDINE [Suspect]
     Active Substance: CHLORHEXIDINE\CHLORHEXIDINE GLUCONATE
     Dosage: UNK
     Route: 048
  108. CHOLECALCIFEROL [Suspect]
     Active Substance: CHOLECALCIFEROL
     Indication: Product used for unknown indication
     Dosage: UNK
     Route: 016
  109. CIMZIA [Suspect]
     Active Substance: CERTOLIZUMAB PEGOL
     Indication: Rheumatoid arthritis
     Dosage: 400 MILLIGRAM
     Route: 058
  110. CIMZIA [Suspect]
     Active Substance: CERTOLIZUMAB PEGOL
     Indication: Product used for unknown indication
     Dosage: UNK
     Route: 065
  111. CIMZIA [Suspect]
     Active Substance: CERTOLIZUMAB PEGOL
     Dosage: UNK
     Route: 058
  112. CIMZIA [Suspect]
     Active Substance: CERTOLIZUMAB PEGOL
     Dosage: 400.0 MILLIGRAM
     Route: 065
  113. CIMZIA [Suspect]
     Active Substance: CERTOLIZUMAB PEGOL
     Dosage: 1.0 DOSAGE FORM, 1 EVERY 1 DAYS
     Route: 058
  114. CIMZIA [Suspect]
     Active Substance: CERTOLIZUMAB PEGOL
     Dosage: 200.0 MILLIGRAM
     Route: 058
  115. CIMZIA [Suspect]
     Active Substance: CERTOLIZUMAB PEGOL
     Dosage: UNK
     Route: 058
  116. CIMZIA [Suspect]
     Active Substance: CERTOLIZUMAB PEGOL
     Dosage: FORMULATION: SOLUTION FOR INJECTION IN PRE-FILLED SYRINGE
     Route: 058
  117. CIMZIA [Suspect]
     Active Substance: CERTOLIZUMAB PEGOL
     Dosage: 400 MILLIGRAM,FORMULATION: SOLUTION FOR INJECTION IN PRE-FILLED SYRINGE
     Route: 058
  118. CORTISONE [Suspect]
     Active Substance: CORTISONE
     Indication: Rheumatoid arthritis
     Dosage: 25.0 MILLIGRAM
     Route: 061
  119. CORTISONE [Suspect]
     Active Substance: CORTISONE
     Indication: Product used for unknown indication
     Dosage: UNK
     Route: 003
  120. CORTISONE [Suspect]
     Active Substance: CORTISONE
     Dosage: UNK
     Route: 065
  121. CORTISONE [Suspect]
     Active Substance: CORTISONE
     Dosage: 25.0 MILLIGRAM
     Route: 061
  122. CORTISONE [Suspect]
     Active Substance: CORTISONE
     Dosage: UNK
     Route: 048
  123. CORTISONE [Suspect]
     Active Substance: CORTISONE
     Dosage: UNK
     Route: 061
  124. CORTISONE [Suspect]
     Active Substance: CORTISONE
     Dosage: 25.0 MILLIGRAM
     Route: 061
  125. CORTISONE [Suspect]
     Active Substance: CORTISONE
     Dosage: UNK
     Route: 048
  126. CORTISONE [Suspect]
     Active Substance: CORTISONE
     Dosage: UNK
     Route: 058
  127. CORTISONE ACETATE [Suspect]
     Active Substance: CORTISONE ACETATE
     Indication: Rheumatoid arthritis
     Dosage: 3.0 MILLIGRAM
     Route: 065
  128. CORTISONE ACETATE [Suspect]
     Active Substance: CORTISONE ACETATE
     Indication: Product used for unknown indication
     Dosage: 25.0 MILLIGRAM
     Route: 061
  129. CORTISONE ACETATE [Suspect]
     Active Substance: CORTISONE ACETATE
     Dosage: UNK
     Route: 061
  130. CORTISONE ACETATE [Suspect]
     Active Substance: CORTISONE ACETATE
     Dosage: 20.0 MILLIGRAM
     Route: 061
  131. CORTISONE ACETATE [Suspect]
     Active Substance: CORTISONE ACETATE
     Dosage: UNK
     Route: 048
  132. CORTISONE ACETATE [Suspect]
     Active Substance: CORTISONE ACETATE
     Dosage: UNK
     Route: 061
  133. CORTISONE ACETATE [Suspect]
     Active Substance: CORTISONE ACETATE
     Dosage: 25.0 MILLIGRAM
     Route: 065
  134. CORTISONE ACETATE [Suspect]
     Active Substance: CORTISONE ACETATE
     Dosage: UNK
     Route: 065
  135. CORTISONE ACETATE [Suspect]
     Active Substance: CORTISONE ACETATE
     Dosage: 25.0 MILLIGRAM
     Route: 048
  136. CORTISONE ACETATE [Suspect]
     Active Substance: CORTISONE ACETATE
     Dosage: 25.0 MILLIGRAM
     Route: 065
  137. CORTISONE ACETATE [Suspect]
     Active Substance: CORTISONE ACETATE
     Dosage: UNK
     Route: 065
  138. COSENTYX [Suspect]
     Active Substance: SECUKINUMAB
     Indication: Rheumatoid arthritis
     Dosage: UNK
     Route: 005
  139. COSENTYX [Suspect]
     Active Substance: SECUKINUMAB
     Indication: Psoriatic arthropathy
     Dosage: FORMULATION: UNKNOWN
     Route: 065
  140. DESOXIMETASONE [Suspect]
     Active Substance: DESOXIMETASONE
     Indication: Rheumatoid arthritis
     Dosage: UNK
     Route: 061
  141. DESOXIMETASONE [Suspect]
     Active Substance: DESOXIMETASONE
     Indication: Product used for unknown indication
     Dosage: 25.0 MILLIGRAM, 1 EVERY 1 DAYS
     Route: 048
  142. DESOXIMETASONE [Suspect]
     Active Substance: DESOXIMETASONE
     Dosage: UNK
     Route: 042
  143. DESOXIMETASONE [Suspect]
     Active Substance: DESOXIMETASONE
     Dosage: UNK
     Route: 048
  144. DESOXIMETASONE [Suspect]
     Active Substance: DESOXIMETASONE
     Dosage: 25.0 MILLIGRAM
     Route: 003
  145. DESOXIMETASONE [Suspect]
     Active Substance: DESOXIMETASONE
     Dosage: UNK
     Route: 061
  146. DESOXIMETASONE [Suspect]
     Active Substance: DESOXIMETASONE
     Dosage: 5.0 MILLIGRAM
     Route: 048
  147. DESOXIMETASONE [Suspect]
     Active Substance: DESOXIMETASONE
     Dosage: UNK
     Route: 058
  148. DESOXIMETASONE [Suspect]
     Active Substance: DESOXIMETASONE
     Dosage: UNK
     Route: 048
  149. DESOXIMETASONE [Suspect]
     Active Substance: DESOXIMETASONE
     Dosage: UNK
     Route: 003
  150. DESOXIMETASONE [Suspect]
     Active Substance: DESOXIMETASONE
     Dosage: 25.0 MILLIGRAM
     Route: 003
  151. DESOXIMETASONE [Suspect]
     Active Substance: DESOXIMETASONE
     Dosage: UNK
     Route: 065
  152. DESOXIMETASONE [Suspect]
     Active Substance: DESOXIMETASONE
     Dosage: 25.0 MILLIGRAM
     Route: 058
  153. DICLOFENAC [Suspect]
     Active Substance: DICLOFENAC
     Indication: Product used for unknown indication
     Dosage: UNK
     Route: 065
  154. DICLOFENAC [Suspect]
     Active Substance: DICLOFENAC
     Dosage: UNK
     Route: 047
  155. DICLOFENAC DIETHYLAMINE [Suspect]
     Active Substance: DICLOFENAC DIETHYLAMINE
     Indication: Product used for unknown indication
     Dosage: UNK
     Route: 065
  156. DICLOFENAC POTASSIUM [Suspect]
     Active Substance: DICLOFENAC POTASSIUM
     Indication: Product used for unknown indication
     Dosage: FORMULATION: TABLET
     Route: 048
  157. DICLOFENAC POTASSIUM [Suspect]
     Active Substance: DICLOFENAC POTASSIUM
     Dosage: FORMULATION: FILM COATED TABLET
     Route: 065
  158. DICLOFENAC SODIUM [Suspect]
     Active Substance: DICLOFENAC\DICLOFENAC SODIUM
     Indication: Product used for unknown indication
     Dosage: UNK
     Route: 065
  159. DICLOFENAC SODIUM [Suspect]
     Active Substance: DICLOFENAC\DICLOFENAC SODIUM
     Dosage: UNK
     Route: 048
  160. DICLOFENAC SODIUM [Suspect]
     Active Substance: DICLOFENAC\DICLOFENAC SODIUM
     Dosage: 50.0 MILLIGRAM
     Route: 065
  161. DICLOFENAC SODIUM [Suspect]
     Active Substance: DICLOFENAC\DICLOFENAC SODIUM
     Dosage: UNK
     Route: 058
  162. DICLOFENAC SODIUM [Suspect]
     Active Substance: DICLOFENAC\DICLOFENAC SODIUM
     Dosage: UNK
     Route: 065
  163. DICLOFENAC SODIUM [Suspect]
     Active Substance: DICLOFENAC\DICLOFENAC SODIUM
     Dosage: FORMULATION: UNKNOWN
     Route: 047
  164. DICLOFENAC SODIUM [Suspect]
     Active Substance: DICLOFENAC\DICLOFENAC SODIUM
     Dosage: FORMULATION: UNKNOWN
     Route: 065
  165. DICLOFENAC SODIUM [Suspect]
     Active Substance: DICLOFENAC\DICLOFENAC SODIUM
     Dosage: FORMULATION: UNKNOWN
     Route: 058
  166. DOXYCYCLINE [Suspect]
     Active Substance: DOXYCYCLINE
     Indication: Product used for unknown indication
     Dosage: 40.0 MILLIGRAM
     Route: 065
  167. DOXYCYCLINE [Suspect]
     Active Substance: DOXYCYCLINE
     Dosage: DOXYCYCLINE HYCLATE
     Route: 065
  168. ENBREL [Suspect]
     Active Substance: ETANERCEPT
     Indication: Rheumatoid arthritis
     Dosage: 50.0 MILLIGRAM
     Route: 058
  169. ENBREL [Suspect]
     Active Substance: ETANERCEPT
     Indication: Product used for unknown indication
     Dosage: 20.0 MILLIGRAM
     Route: 058
  170. ENBREL [Suspect]
     Active Substance: ETANERCEPT
     Indication: Psoriatic arthropathy
     Dosage: UNK
     Route: 065
  171. ENBREL [Suspect]
     Active Substance: ETANERCEPT
     Dosage: 20.0 MILLIGRAM
     Route: 058
  172. ENBREL [Suspect]
     Active Substance: ETANERCEPT
     Dosage: 20.0 MILLIGRAM,1 EVERY 1 WEEKS
     Route: 058
  173. ENBREL [Suspect]
     Active Substance: ETANERCEPT
     Dosage: 50.0 MILLIGRAM,1 EVERY 1 WEEKS
  174. ENBREL [Suspect]
     Active Substance: ETANERCEPT
     Dosage: UNK
     Route: 058
  175. ENBREL [Suspect]
     Active Substance: ETANERCEPT
     Dosage: 50.0 MILLIGRAM
     Route: 058
  176. ENBREL [Suspect]
     Active Substance: ETANERCEPT
     Dosage: UNK
     Route: 065
  177. ERELZI [Suspect]
     Active Substance: ETANERCEPT-SZZS
     Indication: Rheumatoid arthritis
     Dosage: 50.0 MILLIGRAM, 1 EVERY 1 WEEKS
     Route: 058
  178. ERGOCALCIFEROL [Concomitant]
     Active Substance: ERGOCALCIFEROL
     Indication: Product used for unknown indication
     Route: 065
  179. FLUMETHASONE PIVALATE [Suspect]
     Active Substance: FLUMETHASONE PIVALATE
     Indication: Rheumatoid arthritis
     Dosage: UNK
     Route: 058
  180. FLUMETHASONE PIVALATE [Suspect]
     Active Substance: FLUMETHASONE PIVALATE
     Indication: Product used for unknown indication
     Dosage: UNK
     Route: 065
  181. FOLIC ACID [Suspect]
     Active Substance: FOLIC ACID
     Indication: Rheumatoid arthritis
     Dosage: 25.0 MILLIGRAM
     Route: 065
  182. FOLIC ACID [Suspect]
     Active Substance: FOLIC ACID
     Indication: Product used for unknown indication
     Dosage: 5.0 MILLIGRAM
     Route: 048
  183. FOLIC ACID [Suspect]
     Active Substance: FOLIC ACID
     Dosage: 500.0 MILLIGRAM
     Route: 048
  184. FOLIC ACID [Suspect]
     Active Substance: FOLIC ACID
     Dosage: UNK
     Route: 058
  185. FOLIC ACID [Suspect]
     Active Substance: FOLIC ACID
     Dosage: 1.0 MILLIGRAM
     Route: 048
  186. FOLIC ACID [Suspect]
     Active Substance: FOLIC ACID
     Dosage: 5.0 MILLIGRAM
     Route: 048
  187. FOLIC ACID [Suspect]
     Active Substance: FOLIC ACID
     Dosage: 3.0 MILLIGRAM
     Route: 048
  188. FOLIC ACID [Suspect]
     Active Substance: FOLIC ACID
     Dosage: 5.0 MILLIGRAM
     Route: 065
  189. FOLIC ACID [Suspect]
     Active Substance: FOLIC ACID
     Dosage: 500.0 MILLIGRAM
     Route: 065
  190. FOLIC ACID [Suspect]
     Active Substance: FOLIC ACID
     Dosage: 0.5 MILLIGRAM
     Route: 048
  191. FOLIC ACID [Suspect]
     Active Substance: FOLIC ACID
     Dosage: 1.0 MILLIGRAM
     Route: 048
  192. FOLIC ACID [Suspect]
     Active Substance: FOLIC ACID
     Dosage: 1.0 MILLIGRAM
     Route: 065
  193. FOLIC ACID [Suspect]
     Active Substance: FOLIC ACID
     Dosage: UNK
     Route: 065
  194. FOLIC ACID [Suspect]
     Active Substance: FOLIC ACID
     Dosage: 1 MILLIGRAM
     Route: 048
  195. FOLIC ACID [Suspect]
     Active Substance: FOLIC ACID
     Dosage: 15 MILLIGRAM
     Route: 048
  196. FOLIC ACID [Suspect]
     Active Substance: FOLIC ACID
     Dosage: FORMULATION: UNKNOWN
     Route: 065
  197. FOSAMAX [Suspect]
     Active Substance: ALENDRONATE SODIUM
     Indication: Product used for unknown indication
     Dosage: UNK
     Route: 065
  198. FOSAMAX [Suspect]
     Active Substance: ALENDRONATE SODIUM
     Indication: Rheumatoid arthritis
     Dosage: UNK
     Route: 048
  199. GLUCOSAMINE [Concomitant]
     Active Substance: GLUCOSAMINE
     Indication: Product used for unknown indication
     Route: 065
  200. HUMIRA [Suspect]
     Active Substance: ADALIMUMAB
     Indication: Rheumatoid arthritis
     Dosage: UNK
     Route: 065
  201. HUMIRA [Suspect]
     Active Substance: ADALIMUMAB
     Indication: Product used for unknown indication
     Dosage: 400.0 MILLIGRAM
     Route: 058
  202. HUMIRA [Suspect]
     Active Substance: ADALIMUMAB
     Dosage: 40.0 MILLIGRAM
     Route: 058
  203. HUMIRA [Suspect]
     Active Substance: ADALIMUMAB
     Dosage: 4.0 MILLIGRAM
     Route: 058
  204. HUMIRA [Suspect]
     Active Substance: ADALIMUMAB
     Dosage: 400.0 MILLIGRAM
     Route: 058
  205. HYDROCORTISONE [Suspect]
     Active Substance: HYDROCORTISONE
     Indication: Rheumatoid arthritis
     Dosage: UNK
     Route: 058
  206. HYDROCORTISONE [Suspect]
     Active Substance: HYDROCORTISONE
     Indication: Product used for unknown indication
     Dosage: UNK
     Route: 003
  207. HYDROCORTISONE [Suspect]
     Active Substance: HYDROCORTISONE
     Dosage: UNK
     Route: 048
  208. HYDROCORTISONE [Suspect]
     Active Substance: HYDROCORTISONE
     Dosage: 25.0 MILLIGRAM
     Route: 065
  209. HYDROCORTISONE [Suspect]
     Active Substance: HYDROCORTISONE
     Dosage: UNK
     Route: 065
  210. HYDROXYCHLOROQUINE [Suspect]
     Active Substance: HYDROXYCHLOROQUINE
     Indication: Rheumatoid arthritis
     Dosage: UNK
     Route: 065
  211. HYDROXYCHLOROQUINE [Suspect]
     Active Substance: HYDROXYCHLOROQUINE
     Indication: Product used for unknown indication
     Dosage: 400.0 MILLIGRAM,1 EVERY 1 DAYS
     Route: 048
  212. HYDROXYCHLOROQUINE [Suspect]
     Active Substance: HYDROXYCHLOROQUINE
     Indication: Systemic lupus erythematosus
     Dosage: UNK
     Route: 065
  213. HYDROXYCHLOROQUINE [Suspect]
     Active Substance: HYDROXYCHLOROQUINE
     Dosage: 400.0 MILLIGRAM
     Route: 048
  214. HYDROXYCHLOROQUINE [Suspect]
     Active Substance: HYDROXYCHLOROQUINE
     Dosage: 200.0 MILLIGRAM, 2 EVERY 1 DAYS
     Route: 065
  215. HYDROXYCHLOROQUINE [Suspect]
     Active Substance: HYDROXYCHLOROQUINE
     Dosage: UNK
     Route: 048
  216. HYDROXYCHLOROQUINE [Suspect]
     Active Substance: HYDROXYCHLOROQUINE
     Dosage: 400.0 MILLIGRAM, 1 EVERY 1 DAYS
     Route: 065
  217. HYDROXYCHLOROQUINE [Suspect]
     Active Substance: HYDROXYCHLOROQUINE
     Dosage: UNK
     Route: 065
  218. HYDROXYCHLOROQUINE [Suspect]
     Active Substance: HYDROXYCHLOROQUINE
     Dosage: UNK
     Route: 048
  219. HYDROXYCHLOROQUINE [Suspect]
     Active Substance: HYDROXYCHLOROQUINE
     Dosage: 400.0 MILLIGRAM
     Route: 065
  220. HYDROXYCHLOROQUINE [Suspect]
     Active Substance: HYDROXYCHLOROQUINE
     Dosage: UNK
     Route: 065
  221. HYDROXYCHLOROQUINE [Suspect]
     Active Substance: HYDROXYCHLOROQUINE
     Dosage: UNK
     Route: 065
  222. HYDROXYCHLOROQUINE [Suspect]
     Active Substance: HYDROXYCHLOROQUINE
     Dosage: UNK
     Route: 048
  223. HYDROXYCHLOROQUINE [Suspect]
     Active Substance: HYDROXYCHLOROQUINE
     Dosage: 400.0 MILLIGRAM
     Route: 065
  224. HYDROXYCHLOROQUINE [Suspect]
     Active Substance: HYDROXYCHLOROQUINE
     Dosage: 1.0 DOSAGE FORM, 1 EVERY 1 DAYS
  225. HYDROXYCHLOROQUINE [Suspect]
     Active Substance: HYDROXYCHLOROQUINE
     Dosage: 400.0 MILLIGRAM,1 EVERY 1 DAYS
     Route: 048
  226. HYDROXYCHLOROQUINE [Suspect]
     Active Substance: HYDROXYCHLOROQUINE
     Dosage: 4000.0 MILLIGRAM, 1 EVERY 1 DAYS
  227. HYDROXYCHLOROQUINE [Suspect]
     Active Substance: HYDROXYCHLOROQUINE
     Dosage: 400 MILLIGRAM
     Route: 048
  228. HYDROXYCHLOROQUINE [Suspect]
     Active Substance: HYDROXYCHLOROQUINE
     Dosage: 400 MILLIGRAM, 1 EVERY 1 DAYS
     Route: 048
  229. HYDROXYCHLOROQUINE [Suspect]
     Active Substance: HYDROXYCHLOROQUINE
     Dosage: 400 MILLIGRAM, 1 EVERY 1 DAYS
     Route: 058
  230. HYDROXYCHLOROQUINE [Suspect]
     Active Substance: HYDROXYCHLOROQUINE
     Dosage: 40.0 MILLIGRAM, 1 EVERY 1 DAYS
     Route: 065
  231. HYDROXYCHLOROQUINE [Suspect]
     Active Substance: HYDROXYCHLOROQUINE
     Dosage: 400.0 MILLIGRAM, 1 EVERY 1 DAYS
  232. HYDROXYCHLOROQUINE [Suspect]
     Active Substance: HYDROXYCHLOROQUINE
     Dosage: UNK
     Route: 065
  233. HYDROXYCHLOROQUINE [Suspect]
     Active Substance: HYDROXYCHLOROQUINE
     Dosage: 400.0 MILLIGRAM
     Route: 048
  234. HYDROXYCHLOROQUINE [Suspect]
     Active Substance: HYDROXYCHLOROQUINE
     Dosage: 40.0 MILLIGRAM,1 EVERY 1 DAYS
     Route: 058
  235. HYDROXYCHLOROQUINE [Suspect]
     Active Substance: HYDROXYCHLOROQUINE
     Dosage: 5.0 MILLIGRAM
     Route: 048
  236. HYDROXYCHLOROQUINE [Suspect]
     Active Substance: HYDROXYCHLOROQUINE
     Dosage: 200.0 MILLIGRAM,2 EVERY 1 DAYS
     Route: 065
  237. HYDROXYCHLOROQUINE [Suspect]
     Active Substance: HYDROXYCHLOROQUINE
     Dosage: 400.0 MILLIGRAM,1 EVERY 1 DAYS
  238. HYDROXYCHLOROQUINE [Suspect]
     Active Substance: HYDROXYCHLOROQUINE
     Dosage: 40.0 MILLIGRAM, 1 EVERY 1 DAYS
  239. HYDROXYCHLOROQUINE [Suspect]
     Active Substance: HYDROXYCHLOROQUINE
     Dosage: 400.0 MILLIGRAM, 1 EVERY 1 DAYS
  240. HYDROXYCHLOROQUINE [Suspect]
     Active Substance: HYDROXYCHLOROQUINE
     Dosage: 40.0 MILLIGRAM, 1 EVERY 1 DAYS
  241. HYDROXYCHLOROQUINE [Suspect]
     Active Substance: HYDROXYCHLOROQUINE
     Dosage: UNK
     Route: 048
  242. HYDROXYCHLOROQUINE SULFATE [Suspect]
     Active Substance: HYDROXYCHLOROQUINE SULFATE
     Indication: Systemic lupus erythematosus
     Dosage: UNK
     Route: 048
  243. HYDROXYCHLOROQUINE SULFATE [Suspect]
     Active Substance: HYDROXYCHLOROQUINE SULFATE
     Indication: Rheumatoid arthritis
     Dosage: 400.0 MILLIGRAM, 1 EVERY 1 DAYS
     Route: 065
  244. HYDROXYCHLOROQUINE SULFATE [Suspect]
     Active Substance: HYDROXYCHLOROQUINE SULFATE
     Indication: Product used for unknown indication
     Dosage: UNK
     Route: 065
  245. HYDROXYCHLOROQUINE SULFATE [Suspect]
     Active Substance: HYDROXYCHLOROQUINE SULFATE
     Dosage: UNK
     Route: 048
  246. HYDROXYCHLOROQUINE SULFATE [Suspect]
     Active Substance: HYDROXYCHLOROQUINE SULFATE
     Dosage: 400.0 MILLIGRAM
     Route: 065
  247. HYDROXYCHLOROQUINE SULFATE [Suspect]
     Active Substance: HYDROXYCHLOROQUINE SULFATE
     Dosage: UNK
     Route: 065
  248. HYDROXYCHLOROQUINE SULFATE [Suspect]
     Active Substance: HYDROXYCHLOROQUINE SULFATE
     Dosage: UNK
     Route: 065
  249. HYDROXYCHLOROQUINE SULFATE [Suspect]
     Active Substance: HYDROXYCHLOROQUINE SULFATE
     Dosage: UNK
     Route: 048
  250. HYDROXYCHLOROQUINE SULFATE [Suspect]
     Active Substance: HYDROXYCHLOROQUINE SULFATE
     Dosage: 400.0 MILLIGRAM
     Route: 065
  251. HYDROXYCHLOROQUINE SULFATE [Suspect]
     Active Substance: HYDROXYCHLOROQUINE SULFATE
     Dosage: 1.0 DOSAGE FORM, 1 EVERY 1 DAYS
  252. HYDROXYCHLOROQUINE SULFATE [Suspect]
     Active Substance: HYDROXYCHLOROQUINE SULFATE
     Dosage: 400.0 MILLIGRAM,1 EVERY 1 DAYS
     Route: 048
  253. HYDROXYCHLOROQUINE SULFATE [Suspect]
     Active Substance: HYDROXYCHLOROQUINE SULFATE
     Dosage: 4000.0 MILLIGRAM,1 EVERY 1 DAYS
     Route: 048
  254. HYDROXYCHLOROQUINE SULFATE [Suspect]
     Active Substance: HYDROXYCHLOROQUINE SULFATE
     Dosage: 400.0 MILLIGRAM
     Route: 048
  255. HYDROXYCHLOROQUINE SULFATE [Suspect]
     Active Substance: HYDROXYCHLOROQUINE SULFATE
     Dosage: 400.0 MILLIGRAM,1 EVERY 1 DAYS
     Route: 048
  256. HYDROXYCHLOROQUINE SULFATE [Suspect]
     Active Substance: HYDROXYCHLOROQUINE SULFATE
     Dosage: 400.0 MILLIGRAM,1 EVERY 1 DAYS
     Route: 058
  257. HYDROXYCHLOROQUINE SULFATE [Suspect]
     Active Substance: HYDROXYCHLOROQUINE SULFATE
     Dosage: 40.0 MILLIGRAM, 1 EVERY 1 DAYS
     Route: 065
  258. HYDROXYCHLOROQUINE SULFATE [Suspect]
     Active Substance: HYDROXYCHLOROQUINE SULFATE
     Dosage: 400.0 MILLIGRAM,1 EVERY 1 DAYS
     Route: 048
  259. HYDROXYCHLOROQUINE SULFATE [Suspect]
     Active Substance: HYDROXYCHLOROQUINE SULFATE
     Dosage: UNK
     Route: 065
  260. HYDROXYCHLOROQUINE SULFATE [Suspect]
     Active Substance: HYDROXYCHLOROQUINE SULFATE
     Dosage: 400.0 MILLIGRAM
     Route: 048
  261. HYDROXYCHLOROQUINE SULFATE [Suspect]
     Active Substance: HYDROXYCHLOROQUINE SULFATE
     Dosage: 40.0 MILLIGRAM, 1 EVERY 1 DAYS
     Route: 058
  262. HYDROXYCHLOROQUINE SULFATE [Suspect]
     Active Substance: HYDROXYCHLOROQUINE SULFATE
     Dosage: 5.0 MILLIGRAM
     Route: 048
  263. HYDROXYCHLOROQUINE SULFATE [Suspect]
     Active Substance: HYDROXYCHLOROQUINE SULFATE
     Dosage: 200.0 MILLIGRAM, 2 EVERY 1 DAYS
     Route: 065
  264. HYDROXYCHLOROQUINE SULFATE [Suspect]
     Active Substance: HYDROXYCHLOROQUINE SULFATE
     Dosage: 400.0 MILLIGRAM, 1 EVERY 1 DAYS
     Route: 065
  265. HYDROXYCHLOROQUINE SULFATE [Suspect]
     Active Substance: HYDROXYCHLOROQUINE SULFATE
     Dosage: 40.0 MILLIGRAM, 1 EVERY 1 DAYS
     Route: 065
  266. HYDROXYCHLOROQUINE SULFATE [Suspect]
     Active Substance: HYDROXYCHLOROQUINE SULFATE
     Dosage: 400.0 MILLIGRAM, 1 EVERY 1 DAYS
     Route: 048
  267. HYDROXYCHLOROQUINE SULFATE [Suspect]
     Active Substance: HYDROXYCHLOROQUINE SULFATE
     Dosage: 40.0 MILLIGRAM, 1 EVERY 1 DAYS
     Route: 048
  268. HYDROXYCHLOROQUINE SULFATE [Suspect]
     Active Substance: HYDROXYCHLOROQUINE SULFATE
     Dosage: UNK
     Route: 048
  269. ISOPROPYL ALCOHOL [Suspect]
     Active Substance: ISOPROPYL ALCOHOL
     Indication: Product used for unknown indication
     Dosage: FORMULATION:LIQUID TOPICAL
     Route: 065
  270. LANSOPRAZOLE [Concomitant]
     Active Substance: LANSOPRAZOLE
     Indication: Product used for unknown indication
     Dosage: UNK
     Route: 065
  271. LEFLUNOMIDE [Suspect]
     Active Substance: LEFLUNOMIDE
     Indication: Rheumatoid arthritis
     Dosage: 20 MILLIGRAM
     Route: 048
  272. LEFLUNOMIDE [Suspect]
     Active Substance: LEFLUNOMIDE
     Dosage: FORMULATION UNKNOWN
     Route: 065
  273. LYRICA [Suspect]
     Active Substance: PREGABALIN
     Indication: Product used for unknown indication
     Dosage: UNK
     Route: 065
  274. METHOTREXATE [Suspect]
     Active Substance: METHOTREXATE
     Indication: Rheumatoid arthritis
     Dosage: 25.0 MILLIGRAM
     Route: 048
  275. METHOTREXATE [Suspect]
     Active Substance: METHOTREXATE
     Indication: Product used for unknown indication
     Dosage: 25.0 MILLIGRAM
     Route: 065
  276. METHOTREXATE [Suspect]
     Active Substance: METHOTREXATE
     Dosage: UNK
     Route: 065
  277. METHOTREXATE [Suspect]
     Active Substance: METHOTREXATE
     Dosage: 15.0 MILLIGRAM
     Route: 048
  278. METHOTREXATE [Suspect]
     Active Substance: METHOTREXATE
     Dosage: 25.0 MILLIGRAM, 1 EVERY 1 WEEKS
     Route: 048
  279. METHOTREXATE [Suspect]
     Active Substance: METHOTREXATE
     Dosage: 200.0 MILLIGRAM
     Route: 048
  280. METHOTREXATE [Suspect]
     Active Substance: METHOTREXATE
     Dosage: 20.0 MILLIGRAM, 1 EVERY 1 DAYS
     Route: 065
  281. METHOTREXATE [Suspect]
     Active Substance: METHOTREXATE
     Dosage: 25.0 MILLIGRAM, 1 EVERY 1 DAYS
     Route: 048
  282. METHOTREXATE [Suspect]
     Active Substance: METHOTREXATE
     Dosage: 25.0 MILLIGRAM
     Route: 058
  283. METHOTREXATE [Suspect]
     Active Substance: METHOTREXATE
     Dosage: 225.0 MILLIGRAM
     Route: 048
  284. METHOTREXATE [Suspect]
     Active Substance: METHOTREXATE
     Dosage: 500.0 MILLIGRAM, 2 EVERY 1 DAYS
     Route: 065
  285. METHOTREXATE [Suspect]
     Active Substance: METHOTREXATE
     Dosage: 25 MILLIGRAM
     Route: 013
  286. METHOTREXATE [Suspect]
     Active Substance: METHOTREXATE
     Dosage: 25 MILLIGRAM, 1 EVERY 1 DAYS
     Route: 013
  287. METHOTREXATE [Suspect]
     Active Substance: METHOTREXATE
     Dosage: 1 EVERY 1 DAYS
     Route: 048
  288. METHOTREXATE [Suspect]
     Active Substance: METHOTREXATE
     Dosage: 25.0 MILLIGRAM, 1 EVERY 1 DAYS
     Route: 058
  289. METHOTREXATE [Suspect]
     Active Substance: METHOTREXATE
     Dosage: 25.0 MILLIGRAM, 1 EVERY 1 WEEKS
     Route: 048
  290. METHOTREXATE [Suspect]
     Active Substance: METHOTREXATE
     Dosage: 25 MILLIGRAM
     Route: 058
  291. METHOTREXATE [Suspect]
     Active Substance: METHOTREXATE
     Dosage: 20.0 MILLIGRAM
     Route: 048
  292. METHOTREXATE [Suspect]
     Active Substance: METHOTREXATE
     Dosage: UNK
     Route: 013
  293. METHOTREXATE [Suspect]
     Active Substance: METHOTREXATE
     Dosage: 20.0 MILLIGRAM
     Route: 065
  294. METHOTREXATE [Suspect]
     Active Substance: METHOTREXATE
     Dosage: 2.0 DOSAGE FORM, 1 EVERY 1 DAYS
     Route: 048
  295. METHOTREXATE [Suspect]
     Active Substance: METHOTREXATE
     Indication: Rheumatoid arthritis
     Dosage: 20.0 MILLIGRAM, 1 EVERY 1 WEEKS
     Route: 013
  296. METHOTREXATE [Suspect]
     Active Substance: METHOTREXATE
     Indication: Product used for unknown indication
     Dosage: 25.0 MILLIGRAM, 1 EVERY 1 WEEKS
     Route: 058
  297. METHOTREXATE [Suspect]
     Active Substance: METHOTREXATE
     Dosage: 20.0 MILLIGRAM, 1 EVERY 1 WEEKS
     Route: 058
  298. METHOTREXATE [Suspect]
     Active Substance: METHOTREXATE
     Dosage: 20.0 MILLIGRAM, 1 EVERY 1 WEEKS
     Route: 048
  299. METHOTREXATE [Suspect]
     Active Substance: METHOTREXATE
     Dosage: 15.0 MILLIGRAM, 1 EVERY 1 DAYS
     Route: 048
  300. METHOTREXATE [Suspect]
     Active Substance: METHOTREXATE
     Dosage: 25 MILLIGRAM
     Route: 048
  301. METHOTREXATE [Suspect]
     Active Substance: METHOTREXATE
     Dosage: 20.0 MILLIGRAM, 1 EVERY 1 DAYS
     Route: 048
  302. METHOTREXATE [Suspect]
     Active Substance: METHOTREXATE
     Dosage: 1.0 DOSAGE FORM
     Route: 048
  303. METHOTREXATE [Suspect]
     Active Substance: METHOTREXATE
     Dosage: 2.0 GRAM, 1 EVERY 1 DAYS
     Route: 048
  304. METHOTREXATE [Suspect]
     Active Substance: METHOTREXATE
     Dosage: 25.0 MILLIGRAM, 1 EVERY 1 DAYS
     Route: 058
  305. MYCOPHENOLATE MOFETIL [Suspect]
     Active Substance: MYCOPHENOLATE MOFETIL
     Indication: Product used for unknown indication
     Dosage: UNK
     Route: 065
  306. NAPROXEN SODIUM [Suspect]
     Active Substance: NAPROXEN\NAPROXEN SODIUM
     Indication: Rheumatoid arthritis
     Dosage: 500.0 MILLIGRAM
     Route: 065
  307. NAPROXEN SODIUM [Suspect]
     Active Substance: NAPROXEN\NAPROXEN SODIUM
     Indication: Product used for unknown indication
     Dosage: 500.0 MILLIGRAM
     Route: 065
  308. ORENCIA [Suspect]
     Active Substance: ABATACEPT
     Indication: Rheumatoid arthritis
     Dosage: 17.857 MILLIGRAM, 1 EVERY 1 DAYS
     Route: 058
  309. ORENCIA [Suspect]
     Active Substance: ABATACEPT
     Indication: Product used for unknown indication
     Dosage: UNK
     Route: 042
  310. ORENCIA [Suspect]
     Active Substance: ABATACEPT
     Dosage: 5.0 MILLIGRAM
     Route: 065
  311. ORENCIA [Suspect]
     Active Substance: ABATACEPT
     Dosage: UNK
     Route: 058
  312. ORENCIA [Suspect]
     Active Substance: ABATACEPT
     Dosage: UNK
     Route: 065
  313. ORENCIA [Suspect]
     Active Substance: ABATACEPT
     Dosage: 3.0 MILLIGRAM, 2 EVERY 1 DAYS
     Route: 048
  314. ORENCIA [Suspect]
     Active Substance: ABATACEPT
     Dosage: UNK
     Route: 042
  315. ORENCIA [Suspect]
     Active Substance: ABATACEPT
     Dosage: UNK
     Route: 058
  316. ORENCIA [Suspect]
     Active Substance: ABATACEPT
     Dosage: UNK
     Route: 058
  317. ORENCIA [Suspect]
     Active Substance: ABATACEPT
     Dosage: 125.0 MILLIGRAM
     Route: 041
  318. ORENCIA [Suspect]
     Active Substance: ABATACEPT
     Dosage: 25 MILLIGRAM
     Route: 058
  319. ORENCIA [Suspect]
     Active Substance: ABATACEPT
     Dosage: 125 MILLIGRAM, 1 EVERY 1 WEEKS
     Route: 058
  320. ORENCIA [Suspect]
     Active Substance: ABATACEPT
     Dosage: 125 MILLIGRAM
     Route: 058
  321. ORENCIA [Suspect]
     Active Substance: ABATACEPT
     Dosage: UNK
     Route: 042
  322. OTEZLA [Suspect]
     Active Substance: APREMILAST
     Indication: Product used for unknown indication
     Dosage: 3.0 MILLIGRAM, 2 EVERY 1 DAYS
     Route: 065
  323. OTEZLA [Suspect]
     Active Substance: APREMILAST
     Dosage: 3.0 MILLIGRAM, 2 EVERY 1 DAYS
     Route: 048
  324. OXYCODONE HYDROCHLORIDE [Suspect]
     Active Substance: OXYCODONE HYDROCHLORIDE
     Indication: Product used for unknown indication
     Dosage: UNK
     Route: 065
  325. OXYCODONE HYDROCHLORIDE [Suspect]
     Active Substance: OXYCODONE HYDROCHLORIDE
     Dosage: UNK
     Route: 065
  326. OXYCODONE HYDROCHLORIDE [Suspect]
     Active Substance: OXYCODONE HYDROCHLORIDE
     Dosage: UNK
     Route: 065
  327. OXYCODONE HYDROCHLORIDE [Suspect]
     Active Substance: OXYCODONE HYDROCHLORIDE
     Dosage: OXYCODONE
     Route: 065
  328. OXYCODONE HYDROCHLORIDE [Suspect]
     Active Substance: OXYCODONE HYDROCHLORIDE
     Dosage: OXYCODONE
  329. PANTOPRAZOLE [Suspect]
     Active Substance: PANTOPRAZOLE
     Indication: Product used for unknown indication
     Dosage: UNK
     Route: 016
  330. PANTOPRAZOLE [Suspect]
     Active Substance: PANTOPRAZOLE
     Dosage: UNK
     Route: 065
  331. PERIOGARD [Suspect]
     Active Substance: CHLORHEXIDINE GLUCONATE
     Indication: Product used for unknown indication
     Dosage: UNK
     Route: 065
  332. PERIOGARD [Suspect]
     Active Substance: CHLORHEXIDINE GLUCONATE
     Dosage: UNK
     Route: 065
  333. PHTHALYLSULFATHIAZOLE [Suspect]
     Active Substance: PHTHALYLSULFATHIAZOLE
     Indication: Rheumatoid arthritis
     Dosage: UNK
     Route: 065
  334. PHTHALYLSULFATHIAZOLE [Suspect]
     Active Substance: PHTHALYLSULFATHIAZOLE
     Indication: Product used for unknown indication
     Dosage: UNK
     Route: 016
  335. PHTHALYLSULFATHIAZOLE [Suspect]
     Active Substance: PHTHALYLSULFATHIAZOLE
     Dosage: 1000.0 MILLIGRAM, 2 EVERY 1 DAYS
     Route: 048
  336. PHTHALYLSULFATHIAZOLE [Suspect]
     Active Substance: PHTHALYLSULFATHIAZOLE
     Dosage: UNK
     Route: 042
  337. PHTHALYLSULFATHIAZOLE [Suspect]
     Active Substance: PHTHALYLSULFATHIAZOLE
     Dosage: 2000.0 MILLIGRAM
     Route: 048
  338. PHTHALYLSULFATHIAZOLE [Suspect]
     Active Substance: PHTHALYLSULFATHIAZOLE
     Dosage: 400.0 MILLIGRAM
     Route: 065
  339. PHTHALYLSULFATHIAZOLE [Suspect]
     Active Substance: PHTHALYLSULFATHIAZOLE
     Dosage: 500.0 MILLIGRAM
     Route: 048
  340. PREDNISONE [Suspect]
     Active Substance: PREDNISONE
     Indication: Rheumatoid arthritis
     Dosage: 200.0 MILLIGRAM
     Route: 048
  341. PREDNISONE [Suspect]
     Active Substance: PREDNISONE
     Indication: Product used for unknown indication
     Dosage: 1.0 MILLIGRAM
     Route: 065
  342. PREDNISONE [Suspect]
     Active Substance: PREDNISONE
     Dosage: 5.0 MILLIGRAM
     Route: 065
  343. PREDNISONE [Suspect]
     Active Substance: PREDNISONE
     Dosage: 7.5 MILLIGRAM,FORMULATION: UNKNOWN
     Route: 048
  344. PREDNISONE [Suspect]
     Active Substance: PREDNISONE
     Dosage: 5.0 MILLIGRAM
     Route: 065
  345. PREDNISONE [Suspect]
     Active Substance: PREDNISONE
     Dosage: 40 MILLIGRAM
     Route: 048
  346. PREDNISONE [Suspect]
     Active Substance: PREDNISONE
     Dosage: UNK
     Route: 042
  347. PREDNISONE [Suspect]
     Active Substance: PREDNISONE
     Dosage: 10.0 MILLIGRAM
     Route: 048
  348. PREDNISONE [Suspect]
     Active Substance: PREDNISONE
     Dosage: UNK
     Route: 065
  349. PREDNISONE [Suspect]
     Active Substance: PREDNISONE
     Dosage: UNK
     Route: 048
  350. PREGABALIN [Suspect]
     Active Substance: PREGABALIN
     Indication: Product used for unknown indication
     Dosage: UNK
     Route: 065
  351. PSEUDOEPHEDRINE [Suspect]
     Active Substance: PSEUDOEPHEDRINE
     Indication: Product used for unknown indication
     Dosage: UNK
     Route: 065
  352. PSEUDOEPHEDRINE HYDROCHLORIDE [Suspect]
     Active Substance: PSEUDOEPHEDRINE HYDROCHLORIDE
     Indication: Product used for unknown indication
     Dosage: UNK
     Route: 065
  353. PSEUDOEPHEDRINE HYDROCHLORIDE [Suspect]
     Active Substance: PSEUDOEPHEDRINE HYDROCHLORIDE
     Indication: Rheumatoid arthritis
     Dosage: UNK
     Route: 065
  354. PSEUDOEPHEDRINE HYDROCHLORIDE [Suspect]
     Active Substance: PSEUDOEPHEDRINE HYDROCHLORIDE
     Dosage: 25 MILLIGRAM
     Route: 065
  355. CETIRIZINE HYDROCHLORIDE\PSEUDOEPHEDRINE HYDROCHLORIDE [Suspect]
     Active Substance: CETIRIZINE HYDROCHLORIDE\PSEUDOEPHEDRINE HYDROCHLORIDE
     Indication: Rheumatoid arthritis
     Dosage: 25.0 MILLIGRAM
     Route: 065
  356. CETIRIZINE HYDROCHLORIDE\PSEUDOEPHEDRINE HYDROCHLORIDE [Suspect]
     Active Substance: CETIRIZINE HYDROCHLORIDE\PSEUDOEPHEDRINE HYDROCHLORIDE
     Indication: Product used for unknown indication
     Dosage: 10.0 MILLIGRAM
     Route: 048
  357. CETIRIZINE HYDROCHLORIDE\PSEUDOEPHEDRINE HYDROCHLORIDE [Suspect]
     Active Substance: CETIRIZINE HYDROCHLORIDE\PSEUDOEPHEDRINE HYDROCHLORIDE
     Dosage: FORMULATION: TABLET (EXTENDEDRELEASE)
     Route: 065
  358. CETIRIZINE HYDROCHLORIDE\PSEUDOEPHEDRINE HYDROCHLORIDE [Suspect]
     Active Substance: CETIRIZINE HYDROCHLORIDE\PSEUDOEPHEDRINE HYDROCHLORIDE
     Dosage: 10.0 MILLIGRAM
     Route: 065
  359. CETIRIZINE HYDROCHLORIDE\PSEUDOEPHEDRINE HYDROCHLORIDE [Suspect]
     Active Substance: CETIRIZINE HYDROCHLORIDE\PSEUDOEPHEDRINE HYDROCHLORIDE
     Dosage: REACTINE//CETIRIZINE HYDROCHLORIDE
     Route: 065
  360. RITUXIMAB [Suspect]
     Active Substance: RITUXIMAB
     Indication: Rheumatoid arthritis
     Dosage: UNK
     Route: 016
  361. RITUXIMAB [Suspect]
     Active Substance: RITUXIMAB
     Indication: Product used for unknown indication
     Dosage: UNK
     Route: 042
  362. RITUXIMAB [Suspect]
     Active Substance: RITUXIMAB
     Dosage: UNK
     Route: 042
  363. RITUXIMAB [Suspect]
     Active Substance: RITUXIMAB
     Dosage: UNK
     Route: 058
  364. RITUXIMAB [Suspect]
     Active Substance: RITUXIMAB
     Dosage: UNK
     Route: 041
  365. RITUXIMAB [Suspect]
     Active Substance: RITUXIMAB
     Dosage: UNK
     Route: 042
  366. DIETARY SUPPLEMENT\HERBALS [Suspect]
     Active Substance: DIETARY SUPPLEMENT\HERBALS
     Indication: Product used for unknown indication
     Dosage: GLOBULES ORAL
     Route: 065
  367. SULFASALAZINE [Suspect]
     Active Substance: SULFASALAZINE
     Indication: Rheumatoid arthritis
     Dosage: 1.0 GRAM, 2 EVERY 1 DAYS
     Route: 048
  368. SULFASALAZINE [Suspect]
     Active Substance: SULFASALAZINE
     Indication: Product used for unknown indication
     Dosage: 1.0 GRAM, 2 EVERY 1 DAYS
     Route: 065
  369. SULFASALAZINE [Suspect]
     Active Substance: SULFASALAZINE
     Dosage: 500.0 MILLIGRAM
     Route: 048
  370. SULFASALAZINE [Suspect]
     Active Substance: SULFASALAZINE
     Dosage: FORMULATION: UNKNOWN
     Route: 065
  371. SULFASALAZINE [Suspect]
     Active Substance: SULFASALAZINE
     Dosage: 1000.0 MILLIGRAM, 2 EVERY 1 DAYS
     Route: 048
  372. SULFASALAZINE [Suspect]
     Active Substance: SULFASALAZINE
     Dosage: 1.0 GRAM
     Route: 048
  373. FISH OIL [Concomitant]
     Active Substance: FISH OIL
     Dosage: UNK
     Route: 065
  374. STELARA [Suspect]
     Active Substance: USTEKINUMAB
     Indication: Product used for unknown indication
     Dosage: UNK
     Route: 058
  375. STELARA [Suspect]
     Active Substance: USTEKINUMAB
     Dosage: UNK
     Route: 042
  376. STELARA [Suspect]
     Active Substance: USTEKINUMAB
     Dosage: 45.0 MILLIGRAM
     Route: 058
  377. STELARA [Suspect]
     Active Substance: USTEKINUMAB
     Dosage: 45.0 MILLIGRAM
     Route: 042
  378. STELARA [Suspect]
     Active Substance: USTEKINUMAB
     Dosage: UNK
     Route: 058
  379. SULFAMETHOXAZOLE [Suspect]
     Active Substance: SULFAMETHOXAZOLE
     Indication: Product used for unknown indication
     Dosage: UNK
     Route: 065
  380. SULFAMETHOXAZOLE\TRIMETHOPRIM [Suspect]
     Active Substance: SULFAMETHOXAZOLE\TRIMETHOPRIM
     Indication: Product used for unknown indication
     Dosage: UNK
     Route: 065
  381. SULFAMETHOXAZOLE\TRIMETHOPRIM [Suspect]
     Active Substance: SULFAMETHOXAZOLE\TRIMETHOPRIM
     Dosage: UNK
     Route: 065
  382. SULFASALAZINE [Suspect]
     Active Substance: SULFASALAZINE
     Indication: Rheumatoid arthritis
     Dosage: 500.0 MILLIGRAM,1 EVERY 1 DAYS
     Route: 065
  383. SULFASALAZINE [Suspect]
     Active Substance: SULFASALAZINE
     Indication: Product used for unknown indication
     Dosage: 2000.0 MILLIGRAM
     Route: 048
  384. SULFASALAZINE [Suspect]
     Active Substance: SULFASALAZINE
     Dosage: 1 GRAM
     Route: 048
  385. SULFASALAZINE [Suspect]
     Active Substance: SULFASALAZINE
     Dosage: 500.0 MILLIGRAM
     Route: 065
  386. SULFASALAZINE [Suspect]
     Active Substance: SULFASALAZINE
     Dosage: 2.0 GRAM,FORMULATION: UNKNOWN
     Route: 065
  387. SULFASALAZINE [Suspect]
     Active Substance: SULFASALAZINE
     Dosage: 500.0 MILLIGRAM
     Route: 048
  388. SULFASALAZINE [Suspect]
     Active Substance: SULFASALAZINE
     Dosage: 1.0 GRAM, 1 EVERY 1 DAYS
     Route: 065
  389. SULFASALAZINE [Suspect]
     Active Substance: SULFASALAZINE
     Dosage: 1000.0 MILLIGRAM, 2 EVERY 1 DAYS
  390. SULFASALAZINE [Suspect]
     Active Substance: SULFASALAZINE
     Dosage: 500.0 MILLIGRAM
     Route: 065
  391. SULFASALAZINE [Suspect]
     Active Substance: SULFASALAZINE
     Dosage: 2000.0 MILLIGRAM
     Route: 048
  392. SULFASALAZINE [Suspect]
     Active Substance: SULFASALAZINE
     Dosage: 1.0 GRAM
     Route: 048
  393. SULFASALAZINE [Suspect]
     Active Substance: SULFASALAZINE
     Dosage: 1.0 GRAM,1 EVERY 1 DAYS
     Route: 048
  394. SULFASALAZINE [Suspect]
     Active Substance: SULFASALAZINE
     Dosage: 1000.0 MILLIGRAM
     Route: 048
  395. SULFASALAZINE [Suspect]
     Active Substance: SULFASALAZINE
     Dosage: 1.0 GRAM,FORMULATION: UNKNOWN
     Route: 065
  396. SULFASALAZINE [Suspect]
     Active Substance: SULFASALAZINE
     Dosage: UNK
     Route: 065
  397. SULFASALAZINE [Suspect]
     Active Substance: SULFASALAZINE
     Dosage: 1.0 GRAM, 2 EVERY 1 DAYS
     Route: 048
  398. SULFASALAZINE [Suspect]
     Active Substance: SULFASALAZINE
     Dosage: 1.0 DOSAGE FORM, 1 EVERY 1 DAYS
  399. SULFASALAZINE [Suspect]
     Active Substance: SULFASALAZINE
     Dosage: FORMULATION: UNKNOWN
     Route: 048
  400. SULFASALAZINE [Suspect]
     Active Substance: SULFASALAZINE
     Dosage: 1000.0 MILLIGRAM, QD
     Route: 048
  401. SULFASALAZINE [Suspect]
     Active Substance: SULFASALAZINE
     Dosage: 2000.0 MILLIGRAM
     Route: 048
  402. SULFASALAZINE [Suspect]
     Active Substance: SULFASALAZINE
     Dosage: 1.0 GRAM, 2 EVERY 1 DAYS
  403. SULFASALAZINE [Suspect]
     Active Substance: SULFASALAZINE
     Dosage: FORMULATION: UNKNOWN,1 EVERY 1 DAYS
     Route: 065
  404. SULFASALAZINE [Suspect]
     Active Substance: SULFASALAZINE
     Dosage: 500.0 MILLIGRAM
     Route: 065
  405. SULFASALAZINE [Suspect]
     Active Substance: SULFASALAZINE
     Dosage: 1.0 GRAM, 2 EVERY 1 DAYS
     Route: 065
  406. SULFASALAZINE [Suspect]
     Active Substance: SULFASALAZINE
     Dosage: 4000.0 MILLIGRAM, 1 EVERY 1 DAYS
     Route: 065
  407. TOCILIZUMAB [Suspect]
     Active Substance: TOCILIZUMAB
     Indication: Rheumatoid arthritis
     Dosage: UNK
     Route: 065
  408. TOCILIZUMAB [Suspect]
     Active Substance: TOCILIZUMAB
     Indication: Product used for unknown indication
     Dosage: UNK
     Route: 058
  409. TOFACITINIB [Suspect]
     Active Substance: TOFACITINIB
     Indication: Rheumatoid arthritis
     Dosage: 5.0 MILLIGRAM, 2 EVERY 1 DAYS
     Route: 065
  410. TOFACITINIB [Suspect]
     Active Substance: TOFACITINIB
     Indication: Product used for unknown indication
     Dosage: 5.0 MILLIGRAM,1 EVERY 1 DAYS
     Route: 048
  411. TOFACITINIB [Suspect]
     Active Substance: TOFACITINIB
     Indication: Psoriatic arthropathy
     Dosage: 5.0 MILLIGRAM, 1 EVERY 1 DAYS
     Route: 065
  412. TOFACITINIB [Suspect]
     Active Substance: TOFACITINIB
     Dosage: 5.0 MILLIGRAM,1 EVERY 1 WEEKS
     Route: 048
  413. TOFACITINIB [Suspect]
     Active Substance: TOFACITINIB
     Dosage: TOFACITINIB CITRATE ,FORMULATION: TABLET
     Route: 065
  414. TOFACITINIB [Suspect]
     Active Substance: TOFACITINIB
     Dosage: TOFACITINIB CITRATE ,FORMULATION: TABLET
     Route: 058
  415. TOFACITINIB [Suspect]
     Active Substance: TOFACITINIB
     Dosage: TOFACITINIB CITRATE ,FORMULATION: TABLET, 1 EVERY 1 WEEKS
     Route: 048
  416. TOFACITINIB [Suspect]
     Active Substance: TOFACITINIB
     Dosage: 5.0 MILLIGRAM, 2 EVERY 1 DAYS,TOFACITINIB CITRATE ,FORMULATION: TABLET
     Route: 065
  417. TOFACITINIB [Suspect]
     Active Substance: TOFACITINIB
     Dosage: 5.0 MILLIGRAM,TOFACITINIB CITRATE ,FORMULATION: TABLET
     Route: 048
  418. TOFACITINIB [Suspect]
     Active Substance: TOFACITINIB
     Dosage: TOFACITINIB CITRATE ,FORMULATION: TABLET
     Route: 065
  419. TRAMADOL HYDROCHLORIDE [Suspect]
     Active Substance: TRAMADOL HYDROCHLORIDE
     Indication: Product used for unknown indication
     Dosage: UNK
     Route: 065
  420. TRIAMCINOLONE ACETONIDE [Suspect]
     Active Substance: TRIAMCINOLONE ACETONIDE
     Indication: Rheumatoid arthritis
     Dosage: FORMULATION: SUSPENSION INTRA ARTICULAR
     Route: 014
  421. USTEKINUMAB [Suspect]
     Active Substance: USTEKINUMAB
     Indication: Psoriatic arthropathy
     Dosage: 45.0 MILLIGRAM
     Route: 042
  422. USTEKINUMAB [Suspect]
     Active Substance: USTEKINUMAB
     Indication: Product used for unknown indication
     Dosage: 45.0 MILLIGRAM
     Route: 058
  423. VITAMIN B12 [Suspect]
     Active Substance: CYANOCOBALAMIN
     Indication: Product used for unknown indication
     Dosage: UNK
     Route: 065
  424. VITAMIN C [Suspect]
     Active Substance: ASCORBIC ACID
     Indication: Product used for unknown indication
     Dosage: UNK
     Route: 065
  425. PREDNISONE [Suspect]
     Active Substance: PREDNISONE
     Indication: Product used for unknown indication
     Dosage: UNK
     Route: 065
  426. PREDNISONE [Suspect]
     Active Substance: PREDNISONE
     Indication: Rheumatoid arthritis
     Dosage: UNK
     Route: 048
  427. XELJANZ [Suspect]
     Active Substance: TOFACITINIB CITRATE
     Indication: Rheumatoid arthritis
     Dosage: 10.0 MILLIGRAM, 1 EVERY 1 DAYS
     Route: 065
  428. XELJANZ [Suspect]
     Active Substance: TOFACITINIB CITRATE
     Indication: Product used for unknown indication
     Dosage: 5 MILLIGRAM,FORMULATION: TABLET
     Route: 065
  429. XELJANZ [Suspect]
     Active Substance: TOFACITINIB CITRATE
     Dosage: FORMULATION: TABLET
     Route: 048
  430. XELJANZ [Suspect]
     Active Substance: TOFACITINIB CITRATE
     Dosage: 5.0 MILLIGRAM
     Route: 065
  431. XELJANZ [Suspect]
     Active Substance: TOFACITINIB CITRATE
     Dosage: 1.0 DOSAGE FORM, 1 EVERY 1 DAYS,FORMULATION: TABLET
     Route: 065
  432. XELJANZ [Suspect]
     Active Substance: TOFACITINIB CITRATE
     Dosage: 5.0 MILLIGRAM
     Route: 065
  433. XELJANZ [Suspect]
     Active Substance: TOFACITINIB CITRATE
     Dosage: 5.0 MILLIGRAM,2 EVERY 1 DAYS,FORMULATION: TABLET
     Route: 065
  434. XELJANZ [Suspect]
     Active Substance: TOFACITINIB CITRATE
     Dosage: 5.0 MILLIGRAM,2 EVERY 1 DAYS,FORMULATION: TABLET
     Route: 065
  435. XELJANZ [Suspect]
     Active Substance: TOFACITINIB CITRATE
     Dosage: 5.0 MILLIGRAM,2 EVERY 1 DAYS,FORMULATION: TABLET
     Route: 065
  436. XELJANZ [Suspect]
     Active Substance: TOFACITINIB CITRATE
     Dosage: 10.0 MILLIGRAM,FORMULATION:  TABLET
  437. XELJANZ [Suspect]
     Active Substance: TOFACITINIB CITRATE
     Dosage: 10.0 MILLIGRAM, 1 EVERY 1 DAYS,FORMULATION:  TABLET
  438. XELJANZ [Suspect]
     Active Substance: TOFACITINIB CITRATE
     Dosage: FORMULATION:  TABLET
     Route: 065

REACTIONS (54)
  - Adjustment disorder with depressed mood [Fatal]
  - Amnesia [Fatal]
  - Anxiety [Fatal]
  - Asthenia [Fatal]
  - Blood cholesterol increased [Fatal]
  - Breast cancer stage II [Fatal]
  - Decreased appetite [Fatal]
  - Delirium [Fatal]
  - Depression [Fatal]
  - Dislocation of vertebra [Fatal]
  - Dry mouth [Fatal]
  - Dyspepsia [Fatal]
  - Facet joint syndrome [Fatal]
  - Fibromyalgia [Fatal]
  - Gait disturbance [Fatal]
  - General physical health deterioration [Fatal]
  - Grip strength decreased [Fatal]
  - Headache [Fatal]
  - Hypertension [Fatal]
  - Hypoaesthesia [Fatal]
  - Ill-defined disorder [Fatal]
  - Inflammation [Fatal]
  - Injury [Fatal]
  - Intentional product use issue [Fatal]
  - Lip dry [Fatal]
  - Liver disorder [Fatal]
  - Liver injury [Fatal]
  - Lung disorder [Fatal]
  - Lupus vulgaris [Fatal]
  - Malaise [Fatal]
  - Medication error [Fatal]
  - Memory impairment [Fatal]
  - Migraine [Fatal]
  - Muscle spasms [Fatal]
  - Muscular weakness [Fatal]
  - Musculoskeletal pain [Fatal]
  - Night sweats [Fatal]
  - Obesity [Fatal]
  - Off label use [Fatal]
  - Osteoarthritis [Fatal]
  - Paraesthesia [Fatal]
  - Peripheral venous disease [Fatal]
  - Prescribed overdose [Fatal]
  - Product use in unapproved indication [Fatal]
  - Product use issue [Fatal]
  - Psoriatic arthropathy [Fatal]
  - Rheumatic fever [Fatal]
  - Sciatica [Fatal]
  - Sleep disorder [Fatal]
  - Swollen joint count increased [Fatal]
  - Type 2 diabetes mellitus [Fatal]
  - Weight decreased [Fatal]
  - Wound infection [Fatal]
  - X-ray abnormal [Fatal]
